FAERS Safety Report 6772332-3 (Version None)
Quarter: 2010Q2

REPORT INFORMATION
  Report Type: 
  Country: None (occurrence: None)
  Receive Date: 20100616
  Receipt Date: 20091211
  Transmission Date: 20101027
  Serious: No
  Sender: FDA-Public Use
  Company Number: US-ASTRAZENECA-2009SE20747

PATIENT
  Age: 31 Year
  Sex: Female

DRUGS (5)
  1. PULMICORT FLEXHALER [Suspect]
     Indication: HYPERSENSITIVITY
     Dosage: TWO PUFFS
     Route: 055
  2. PULMICORT FLEXHALER [Suspect]
     Indication: ASTHMA
     Dosage: TWO PUFFS
     Route: 055
  3. PULMICORT FLEXHALER [Suspect]
     Dosage: TWO PUFFS
     Route: 055
  4. PULMICORT FLEXHALER [Suspect]
     Dosage: TWO PUFFS
     Route: 055
  5. NASONEX [Concomitant]

REACTIONS (2)
  - DRUG EXPOSURE DURING PREGNANCY [None]
  - DYSPHONIA [None]
